FAERS Safety Report 9959411 (Version 1)
Quarter: 2014Q1

REPORT INFORMATION
  Report Type: Spontaneous
  Country: US (occurrence: None)
  Receive Date: 20140228
  Receipt Date: 20140228
  Transmission Date: 20141002
  Serious: Yes (Hospitalization)
  Sender: FDA-Public Use
  Company Number: None

PATIENT
  Age: 75 Year
  Sex: Female

DRUGS (1)
  1. ACTHAR GEL HP80UNIT/ML 5ML VL QUESTCOR [Suspect]
     Indication: RHEUMATOID ARTHRITIS
     Dosage: INJECT 1 ML (80 UNITS) SUBCUTANEOUSLY TWICE A WEEK FOR 12 WEEKS.
     Route: 058
     Dates: start: 20140203

REACTIONS (6)
  - Local swelling [None]
  - Dizziness [None]
  - Headache [None]
  - Paraesthesia oral [None]
  - Blood pressure increased [None]
  - Hypoaesthesia [None]
